FAERS Safety Report 12960041 (Version 2)
Quarter: 2016Q4

REPORT INFORMATION
  Report Type: Spontaneous
  Country: JP (occurrence: JP)
  Receive Date: 20161121
  Receipt Date: 20161122
  Transmission Date: 20170207
  Serious: Yes (Hospitalization, Other)
  Sender: FDA-Public Use
  Company Number: JP-BAYER-2016-220877

PATIENT
  Age: 71 Year
  Sex: Male
  Weight: 71.3 kg

DRUGS (12)
  1. LANSOPRAZOLE. [Concomitant]
     Active Substance: LANSOPRAZOLE
     Dosage: 15 MG, QD
     Route: 048
  2. HEPARIN [Concomitant]
     Active Substance: HEPARIN SODIUM
     Indication: ANTICOAGULANT THERAPY
     Dosage: UNK
  3. FALECALCITRIOL [Concomitant]
     Active Substance: FALECALCITRIOL
     Dosage: 0.3 ?G, QD
     Route: 048
  4. DEXNON [LEVOTHYROXINE SODIUM] [Concomitant]
     Dosage: 75 ?G, QD
     Route: 048
  5. ROSUVASTATIN CALCIUM. [Concomitant]
     Active Substance: ROSUVASTATIN CALCIUM
     Dosage: 2.5 MG, QD
     Route: 048
  6. CALCIUM BETA [CALCIUM CARBONATE] [Concomitant]
     Dosage: 1.5 G, QD
     Route: 048
  7. EBASTINE [Concomitant]
     Active Substance: EBASTINE
     Dosage: 10 MG, QD
     Route: 048
  8. BAYASPIRIN [Suspect]
     Active Substance: ASPIRIN
     Indication: MYOCARDIAL ISCHAEMIA
     Dosage: 100 MG, QD
     Route: 048
     Dates: end: 2015
  9. BAYASPIRIN [Suspect]
     Active Substance: ASPIRIN
     Indication: MYOCARDIAL ISCHAEMIA
     Dosage: UNK
     Route: 048
     Dates: end: 201603
  10. NAFAMOSTAT MESILATE [Concomitant]
     Active Substance: NAFAMOSTAT MESYLATE
     Indication: ANTICOAGULANT THERAPY
     Dosage: UNK
  11. BAYASPIRIN [Suspect]
     Active Substance: ASPIRIN
     Indication: MYOCARDIAL ISCHAEMIA
     Dosage: UNK
     Route: 048
     Dates: start: 201604
  12. CINACALCET HYDROCHLORIDE [Concomitant]
     Active Substance: CINACALCET HYDROCHLORIDE
     Dosage: 50 MG, QD
     Route: 048

REACTIONS (6)
  - Gastrointestinal haemorrhage [None]
  - Epigastric discomfort [None]
  - Anaemia [Recovering/Resolving]
  - Occult blood [None]
  - Dizziness [None]
  - Gastrointestinal angiodysplasia [None]

NARRATIVE: CASE EVENT DATE: 2015
